FAERS Safety Report 6695951-1 (Version None)
Quarter: 2010Q2

REPORT INFORMATION
  Report Type: 
  Country: None (occurrence: None)
  Receive Date: 20100426
  Receipt Date: 20100421
  Transmission Date: 20101027
  Serious: Yes (Other)
  Sender: FDA-Public Use
  Company Number: CZ-SANOFI-AVENTIS-2010SA017464

PATIENT
  Age: 53 Year
  Sex: Female
  Weight: 59.5 kg

DRUGS (16)
  1. ARAVA [Suspect]
     Indication: RHEUMATOID ARTHRITIS
     Route: 048
     Dates: start: 20091106, end: 20100305
  2. LESCOL XL [Suspect]
     Route: 048
     Dates: start: 20100201, end: 20100304
  3. HELICID [Concomitant]
     Route: 048
  4. ESSENTIALE FORTE [Concomitant]
     Route: 048
  5. SILYMARIN [Concomitant]
     Route: 048
  6. MELOXICAM [Concomitant]
     Route: 048
  7. PREDNISONE [Concomitant]
     Indication: RHEUMATOID ARTHRITIS
     Route: 048
     Dates: end: 20100330
  8. PREDNISONE [Concomitant]
     Route: 048
     Dates: start: 20100331, end: 20100331
  9. PREDNISONE [Concomitant]
     Route: 048
     Dates: start: 20100401
  10. POTASSIUM CHLORIDE [Concomitant]
     Route: 048
  11. PARALEN [Concomitant]
     Route: 048
  12. LEXAURIN [Concomitant]
     Route: 048
  13. LETROX [Concomitant]
     Dosage: 75 MG FOR NEXT THREE WEEKS THEN 1/2 TABLET DAILY
     Route: 048
  14. ZOLPIDEM [Concomitant]
     Dosage: 1/2 TABLET
     Route: 048
  15. FLAVOBION [Concomitant]
     Route: 048
  16. COLECALCIFEROL [Concomitant]
     Route: 048

REACTIONS (1)
  - LIVER FUNCTION TEST ABNORMAL [None]
